FAERS Safety Report 24570131 (Version 1)
Quarter: 2024Q4

REPORT INFORMATION
  Report Type: Report from Study
  Country: DO (occurrence: DO)
  Receive Date: 20241031
  Receipt Date: 20241031
  Transmission Date: 20250115
  Serious: Yes (Disabling, Other)
  Sender: MYLAN
  Company Number: DO-MYLANLABS-2024M1031702

PATIENT
  Sex: Female
  Weight: 65.76 kg

DRUGS (2)
  1. LIPITOR [Suspect]
     Active Substance: ATORVASTATIN CALCIUM
     Indication: Blood cholesterol
     Dosage: 10 MILLIGRAM, QD (1 TABLET, DAILY)
     Route: 048
  2. LIPITOR [Suspect]
     Active Substance: ATORVASTATIN CALCIUM
     Indication: Blood triglycerides

REACTIONS (3)
  - Visual impairment [Not Recovered/Not Resolved]
  - Eye operation [Not Recovered/Not Resolved]
  - Memory impairment [Not Recovered/Not Resolved]
